FAERS Safety Report 15847705 (Version 1)
Quarter: 2019Q1

REPORT INFORMATION
  Report Type: Spontaneous
  Country: IN (occurrence: IN)
  Receive Date: 20190121
  Receipt Date: 20190121
  Transmission Date: 20190417
  Serious: Yes (Death, Hospitalization, Other)
  Sender: FDA-Public Use
  Company Number: IN-ASTELLAS-2019US002467

PATIENT
  Age: 33 Year
  Sex: Female

DRUGS (4)
  1. METHYLPREDNISOLONE. [Suspect]
     Active Substance: METHYLPREDNISOLONE
     Route: 042
  2. BASILIXIMAB [Suspect]
     Active Substance: BASILIXIMAB
     Indication: LUNG TRANSPLANT
     Dosage: 20 MG, UNKNOWN FREQ. (20 MG INFUSED OVER 30 MIN DURING LUNG IMPLANTATION)
     Route: 042
  3. TACROLIMUS. [Suspect]
     Active Substance: TACROLIMUS
     Indication: LUNG TRANSPLANT
     Dosage: 0.1 MG/KG, ONCE DAILY
     Route: 048
  4. METHYLPREDNISOLONE. [Suspect]
     Active Substance: METHYLPREDNISOLONE
     Indication: LUNG TRANSPLANT
     Dosage: 500 MG, UNKNOWN FREQ. (BEFORE PERFUSION OF EACH LUNG)
     Route: 042

REACTIONS (7)
  - Procedural complication [Recovered/Resolved]
  - Hypotension [Unknown]
  - Respiratory failure [Unknown]
  - Klebsiella infection [Unknown]
  - Infectious pleural effusion [Unknown]
  - Pneumonia [Fatal]
  - Septic shock [Fatal]
